FAERS Safety Report 15151909 (Version 2)
Quarter: 2025Q1

REPORT INFORMATION
  Report Type: Report from Study
  Country: US (occurrence: US)
  Receive Date: 20180717
  Receipt Date: 20250327
  Transmission Date: 20250408
  Serious: No
  Sender: TAKEDA
  Company Number: US-SHIRE-US201825876

PATIENT
  Sex: Male
  Weight: 132 kg

DRUGS (11)
  1. IDURSULFASE [Suspect]
     Active Substance: IDURSULFASE
     Indication: Mucopolysaccharidosis
     Dosage: UNK UNK, 1/WEEK
     Dates: start: 20071128
  2. IDURSULFASE [Suspect]
     Active Substance: IDURSULFASE
     Dosage: 30 MILLIGRAM, 1/WEEK
     Dates: start: 20250219
  3. EPINEPHRINE [Concomitant]
     Active Substance: EPINEPHRINE
  4. SODIUM CHLORIDE [Concomitant]
     Active Substance: SODIUM CHLORIDE
  5. CLONIDINE HYDROCHLORIDE [Concomitant]
     Active Substance: CLONIDINE HYDROCHLORIDE
  6. IBUPROFEN [Concomitant]
     Active Substance: IBUPROFEN
  7. SODIUM CHLORIDE [Concomitant]
     Active Substance: SODIUM CHLORIDE
  8. HEPARIN [Concomitant]
     Active Substance: HEPARIN SODIUM
  9. DIPHENHYDRAMINE HYDROCHLORIDE [Concomitant]
     Active Substance: DIPHENHYDRAMINE HYDROCHLORIDE
  10. BROMPHENIRAMINE\PSEUDOEPHEDRINE [Concomitant]
     Active Substance: BROMPHENIRAMINE\PSEUDOEPHEDRINE
  11. LIDOCAINE AND PRILOCAINE [Concomitant]
     Active Substance: LIDOCAINE\PRILOCAINE

REACTIONS (3)
  - Eructation [Unknown]
  - Diarrhoea [Unknown]
  - Knee deformity [Not Recovered/Not Resolved]
